FAERS Safety Report 9747512 (Version 1)
Quarter: 2013Q4

REPORT INFORMATION
  Report Type: Spontaneous
  Country: CA (occurrence: CA)
  Receive Date: 20131212
  Receipt Date: 20131212
  Transmission Date: 20140711
  Serious: Yes (Hospitalization)
  Sender: FDA-Public Use
  Company Number: CA-JNJFOC-20131203462

PATIENT
  Age: 48 Year
  Sex: Female
  Weight: 74.3 kg

DRUGS (23)
  1. CAELYX [Suspect]
     Indication: OVARIAN CANCER
     Route: 042
     Dates: start: 20130729, end: 20131021
  2. EC145 [Suspect]
     Indication: OVARIAN CANCER
     Route: 042
     Dates: start: 20130729, end: 20131021
  3. GRANISETRON [Suspect]
     Indication: PROPHYLAXIS OF NAUSEA AND VOMITING
     Dosage: POST CHEMO
     Route: 048
     Dates: start: 20130729
  4. GRANISETRON [Suspect]
     Indication: PROPHYLAXIS OF NAUSEA AND VOMITING
     Dosage: POST CHEMO
     Route: 048
     Dates: start: 20130729
  5. DEXAMETHASONE [Suspect]
     Indication: PROPHYLAXIS OF NAUSEA AND VOMITING
     Dosage: POST CHEMO
     Route: 048
     Dates: start: 20130730
  6. DEXAMETHASONE [Suspect]
     Indication: PROPHYLAXIS OF NAUSEA AND VOMITING
     Dosage: POST CHEMO
     Route: 048
     Dates: start: 20130730
  7. EC20 [Suspect]
     Indication: SINGLE PHOTON EMISSION COMPUTERISED TOMOGRAM
     Dosage: ONCE
     Route: 042
     Dates: start: 20130717, end: 20130717
  8. PLACEBO [Suspect]
     Indication: OVARIAN CANCER
     Route: 042
     Dates: start: 20130729, end: 20131021
  9. FOLIC ACID [Suspect]
     Indication: SINGLE PHOTON EMISSION COMPUTERISED TOMOGRAM
     Dosage: 0.5 MG ONCE
     Route: 042
     Dates: start: 20130717, end: 20130717
  10. METOCLOPRAMIDE [Suspect]
     Indication: PROPHYLAXIS OF NAUSEA AND VOMITING
     Dosage: PRE CHEMO
     Route: 048
  11. METOCLOPRAMIDE [Suspect]
     Indication: PROPHYLAXIS OF NAUSEA AND VOMITING
     Dosage: PRE CHEMO
     Route: 048
  12. ACIDOPHILUS [Concomitant]
     Indication: SUPPLEMENTATION THERAPY
     Route: 048
     Dates: start: 20130729
  13. RESTORALAX [Concomitant]
     Indication: BOWEL MOVEMENT IRREGULARITY
     Route: 048
     Dates: start: 20130729
  14. OMEGA 3 [Concomitant]
     Indication: SUPPLEMENTATION THERAPY
     Route: 048
     Dates: start: 201307
  15. RANITIDINE [Concomitant]
     Indication: DYSPEPSIA
     Route: 048
     Dates: start: 20130320
  16. RANITIDINE [Concomitant]
     Indication: GASTROOESOPHAGEAL REFLUX DISEASE
     Route: 048
     Dates: start: 20130320
  17. SYMBICORT [Concomitant]
     Indication: ASTHMA
     Route: 065
     Dates: start: 2001
  18. VENTOLIN [Concomitant]
     Indication: ASTHMA
     Route: 065
     Dates: start: 1990
  19. VITAMIN D [Concomitant]
     Indication: SUPPLEMENTATION THERAPY
     Route: 048
     Dates: start: 20130727
  20. ZOPICLONE [Concomitant]
     Indication: INSOMNIA
     Route: 048
     Dates: start: 20130801
  21. DEXAMETHASONE [Concomitant]
     Indication: SMALL INTESTINAL OBSTRUCTION
     Route: 042
     Dates: start: 20130806
  22. OCTREOTIDE [Concomitant]
     Indication: DYSPNOEA
     Route: 058
     Dates: start: 20130810
  23. COQ10 [Concomitant]
     Indication: SUPPLEMENTATION THERAPY
     Route: 048
     Dates: start: 2010

REACTIONS (1)
  - Eosinophilic pneumonia [Unknown]
